FAERS Safety Report 4928857-6 (Version None)
Quarter: 2006Q1

REPORT INFORMATION
  Report Type: 
  Country: None (occurrence: None)
  Receive Date: 20060301
  Receipt Date: 20060222
  Transmission Date: 20060701
  Serious: Yes (Life-Threatening, Hospitalization)
  Sender: FDA-Public Use
  Company Number: 2006AC00319

PATIENT
  Age: 51 Year
  Sex: Female
  Weight: 89 kg

DRUGS (6)
  1. QUETIAPINE [Suspect]
     Indication: SCHIZOPHRENIA
     Route: 048
  2. LITHIUM [Suspect]
  3. THYROXINE [Concomitant]
     Indication: HYPOTHYROIDISM
  4. SIMVASTATIN [Concomitant]
     Indication: HYPERLIPIDAEMIA
  5. ASPIRIN [Concomitant]
     Indication: PROPHYLAXIS
  6. ATENOLOL [Concomitant]
     Indication: HYPERTENSION

REACTIONS (5)
  - CONFUSIONAL STATE [None]
  - DIABETES INSIPIDUS [None]
  - DIABETIC KETOACIDOSIS [None]
  - DISEASE RECURRENCE [None]
  - PSYCHOTIC DISORDER [None]
